FAERS Safety Report 8811643 (Version 1)
Quarter: 2012Q4

REPORT INFORMATION
  Report Type: Spontaneous
  Country: JP (occurrence: None)
  Receive Date: 20120924
  Receipt Date: 20120924
  Transmission Date: 20130627
  Serious: Yes (Hospitalization, Other)
  Sender: FDA-Public Use
  Company Number: TCI2012A04978

PATIENT
  Age: 74 Year
  Sex: Male

DRUGS (11)
  1. TAKEPRON [Suspect]
     Route: 048
     Dates: start: 20120618, end: 20120807
  2. ACTOS [Suspect]
     Route: 048
     Dates: start: 20061120
  3. ACARBOSE [Suspect]
     Dosage: 300 mg (100 mg, 3 in 1 D)
     Route: 048
     Dates: start: 20071120
  4. METGLUCO [Suspect]
     Dosage: 750 mg (250 mg, 3 in 1 D), Per Oral
     Route: 048
     Dates: start: 20110721
  5. HARNAL [Suspect]
     Route: 048
     Dates: start: 20040629
  6. AMARYL [Suspect]
     Dosage: 6 mg (3 mg, 2 in 1 D), Per Oral
     Route: 048
     Dates: start: 20060614
  7. HERBAL EXTRACTS NOS [Suspect]
     Dosage: 7.5 gm (2.5 gm, 3 in 1 D) Per Oral
     Route: 048
     Dates: start: 20040629
  8. MOHRUS [Suspect]
     Route: 062
     Dates: start: 20090303
  9. MICARDIS [Suspect]
     Dosage: 20 mg (20 mg, 1 in 1 D) per Oral
     Route: 048
     Dates: start: 20120801
  10. NADIFLOXACIN [Suspect]
     Dosage: Optimal dose (1 in 1 D), Transdermal
     Route: 062
     Dates: start: 20120808, end: 20120817
  11. ROXITHROMYCIN [Suspect]
     Dosage: 300 mg (150 mg, 2 in 1 D) Per Oral
     Route: 048
     Dates: start: 20120808, end: 20120817

REACTIONS (4)
  - Interstitial lung disease [None]
  - Pulmonary hypertension [None]
  - Tricuspid valve incompetence [None]
  - Mitral valve incompetence [None]
